FAERS Safety Report 13555708 (Version 1)
Quarter: 2017Q2

REPORT INFORMATION
  Report Type: Spontaneous
  Country: HU (occurrence: HU)
  Receive Date: 20170517
  Receipt Date: 20170517
  Transmission Date: 20170830
  Serious: Yes (Other)
  Sender: FDA-Public Use
  Company Number: PHHY2017HU070676

PATIENT
  Age: 51 Year
  Sex: Female
  Weight: 78 kg

DRUGS (1)
  1. FEMARA [Suspect]
     Active Substance: LETROZOLE
     Indication: PRODUCT USED FOR UNKNOWN INDICATION
     Dosage: UNK
     Route: 065
     Dates: start: 201301

REACTIONS (10)
  - Metastases to bone [Unknown]
  - Calcification metastatic [Unknown]
  - Blood lactate dehydrogenase increased [Unknown]
  - Lymphadenopathy [Unknown]
  - Carbohydrate antigen 15-3 increased [Unknown]
  - Erythema [Unknown]
  - Metastases to lymph nodes [Unknown]
  - Blood alkaline phosphatase increased [Unknown]
  - Metastases to liver [Unknown]
  - Dermatitis [Unknown]

NARRATIVE: CASE EVENT DATE: 201701
